FAERS Safety Report 14551488 (Version 1)
Quarter: 2018Q1

REPORT INFORMATION
  Report Type: Spontaneous
  Country: FR (occurrence: FR)
  Receive Date: 20180220
  Receipt Date: 20180220
  Transmission Date: 20180509
  Serious: Yes (Hospitalization)
  Sender: FDA-Public Use
  Company Number: FR-CONCORDIA PHARMACEUTICALS INC.-E2B_00009962

PATIENT
  Age: 57 Year
  Sex: Female

DRUGS (11)
  1. AUGMENTIN [Suspect]
     Active Substance: AMOXICILLIN\CLAVULANATE POTASSIUM
     Indication: INFECTION
     Route: 048
     Dates: start: 20171228, end: 20180104
  2. SERTRALINE [Concomitant]
     Active Substance: SERTRALINE HYDROCHLORIDE
     Dates: end: 20180110
  3. LEVOTHYROX 125 MICROGRAMMES, COMPRIM? S?CABLE [Concomitant]
     Active Substance: LEVOTHYROXINE SODIUM
     Route: 048
  4. OMEPRAZOLE. [Concomitant]
     Active Substance: OMEPRAZOLE
     Dates: end: 20180110
  5. ATORVASTATINE [Concomitant]
     Active Substance: ATORVASTATIN
     Dates: end: 20180110
  6. TEMERITDUO 5 MG/12,5 MG, COMPRIM? PELLICUL? [Concomitant]
     Dates: end: 20180110
  7. KETOPROFENE [Concomitant]
     Active Substance: KETOPROFEN
     Dates: end: 20180110
  8. VALSARTAN. [Concomitant]
     Active Substance: VALSARTAN
     Dates: end: 20180110
  9. PREDNISOLONE. [Suspect]
     Active Substance: PREDNISOLONE
     Indication: INFECTION
     Route: 048
     Dates: start: 20171228, end: 20180101
  10. NEO-CODION ADULTES, SIROP [Suspect]
     Active Substance: CODEINE
     Indication: COUGH
     Route: 048
     Dates: start: 20171228, end: 20180104
  11. RHINOMAXIL [Suspect]
     Active Substance: BECLOMETHASONE DIPROPIONATE
     Indication: RHINITIS
     Route: 045
     Dates: start: 20171228, end: 20180102

REACTIONS (1)
  - Reversible cerebral vasoconstriction syndrome [Recovering/Resolving]

NARRATIVE: CASE EVENT DATE: 20180105
